FAERS Safety Report 6238874-4 (Version None)
Quarter: 2009Q2

REPORT INFORMATION
  Report Type: 
  Country: None (occurrence: None)
  Receive Date: 20090622
  Receipt Date: 20090611
  Transmission Date: 20091009
  Serious: Yes (Death)
  Sender: FDA-Public Use
  Company Number: NL-JNJFOC-20090606853

PATIENT
  Age: 70 Year
  Sex: Male

DRUGS (10)
  1. GALANTAMINE [Suspect]
     Indication: DEMENTIA ALZHEIMER'S TYPE
     Route: 065
  2. SPIRONOLACTONE [Concomitant]
     Route: 065
  3. METOPROLOL SUCCINATE [Concomitant]
     Route: 065
  4. CARBASALATE [Concomitant]
     Route: 065
  5. CALCIUM [Concomitant]
     Route: 065
  6. LOSARTAN POTASSIUM [Concomitant]
     Route: 065
  7. THIAZIDE [Concomitant]
     Route: 065
  8. ROSUVASTATIN [Concomitant]
     Route: 065
  9. PHENTOLAMINE MESYLATE [Concomitant]
     Route: 065
  10. PAPAVERINE [Concomitant]
     Route: 065

REACTIONS (1)
  - CARDIAC ARREST [None]
